FAERS Safety Report 9628102 (Version 1)
Quarter: 2013Q4

REPORT INFORMATION
  Report Type: Spontaneous
  Country: US (occurrence: US)
  Receive Date: 20131017
  Receipt Date: 20131017
  Transmission Date: 20140711
  Serious: Yes (Other)
  Sender: FDA-Public Use
  Company Number: US-AMGEN-USASP2013072489

PATIENT
  Age: 63 Year
  Sex: Female

DRUGS (3)
  1. ENBREL [Suspect]
     Indication: RHEUMATOID ARTHRITIS
     Dosage: 50 MG, QWK
     Route: 065
     Dates: start: 20130905
  2. ENBREL [Suspect]
     Indication: SJOGREN^S SYNDROME
  3. METHOTREXATE [Concomitant]
     Dosage: 15 MG, QWK

REACTIONS (3)
  - Dysphagia [Not Recovered/Not Resolved]
  - Laryngeal injury [Not Recovered/Not Resolved]
  - Insomnia [Not Recovered/Not Resolved]
